FAERS Safety Report 7933235-1 (Version None)
Quarter: 2011Q4

REPORT INFORMATION
  Report Type: 
  Country: None (occurrence: None)
  Receive Date: 20111122
  Receipt Date: 20111116
  Transmission Date: 20120403
  Serious: Yes (Death, Hospitalization, Other)
  Sender: FDA-Public Use
  Company Number: US-ACTELION-A-US2011-45936

PATIENT

DRUGS (2)
  1. TRACLEER [Suspect]
     Indication: PULMONARY ARTERIAL HYPERTENSION
     Dosage: UNK
     Route: 048
  2. CHEMOTHERAPEUTICS [Concomitant]

REACTIONS (4)
  - CAROTID ARTERY DISEASE [None]
  - DEATH [None]
  - RENAL CANCER [None]
  - NEPHRECTOMY [None]
